FAERS Safety Report 16255383 (Version 4)
Quarter: 2019Q2

REPORT INFORMATION
  Report Type: Report from Study
  Country: CO (occurrence: CO)
  Receive Date: 20190430
  Receipt Date: 20190621
  Transmission Date: 20190711
  Serious: Yes (Hospitalization)
  Sender: FDA-Public Use
  Company Number: CO-ACTELION-A-CH2019-187253

PATIENT
  Age: 76 Year
  Sex: Female
  Weight: 53 kg

DRUGS (7)
  1. OPSUMIT [Suspect]
     Active Substance: MACITENTAN
     Indication: PULMONARY ARTERIAL HYPERTENSION
     Dosage: 10 MG, QD
     Route: 048
     Dates: start: 20190225, end: 2019
  2. SILDENAFIL. [Concomitant]
     Active Substance: SILDENAFIL
     Dosage: 50 MG, QD
     Route: 048
     Dates: start: 20190225
  3. LEVOTIROXIN [Concomitant]
     Active Substance: LEVOTHYROXINE SODIUM
  4. OMEPRAZOLE. [Concomitant]
     Active Substance: OMEPRAZOLE
  5. ATORVASTATINE [Concomitant]
     Active Substance: ATORVASTATIN
  6. ENALAPRIL [Concomitant]
     Active Substance: ENALAPRIL
  7. CLOPIDROGEL SANDOZ [Concomitant]
     Active Substance: CLOPIDOGREL BISULFATE

REACTIONS (13)
  - Myocardial infarction [Recovering/Resolving]
  - Blood sodium decreased [Not Recovered/Not Resolved]
  - Discomfort [Not Recovered/Not Resolved]
  - Back pain [Not Recovered/Not Resolved]
  - Decreased appetite [Not Recovered/Not Resolved]
  - Nasopharyngitis [Not Recovered/Not Resolved]
  - Catheterisation cardiac [Unknown]
  - Chest pain [Not Recovered/Not Resolved]
  - Blood potassium decreased [Not Recovered/Not Resolved]
  - Coronary artery disease [Recovering/Resolving]
  - Apathy [Not Recovered/Not Resolved]
  - Pain in extremity [Not Recovered/Not Resolved]
  - Therapy cessation [Unknown]

NARRATIVE: CASE EVENT DATE: 20190227
